FAERS Safety Report 24026349 (Version 3)
Quarter: 2024Q3

REPORT INFORMATION
  Report Type: Report from Study
  Country: IT (occurrence: IT)
  Receive Date: 20240628
  Receipt Date: 20240710
  Transmission Date: 20241016
  Serious: No
  Sender: ROCHE
  Company Number: IT-ROCHE-3335918

PATIENT
  Age: 59 Year
  Sex: Female
  Weight: 55.0 kg

DRUGS (17)
  1. ALECTINIB [Suspect]
     Active Substance: ALECTINIB
     Indication: Lung cancer metastatic
     Route: 048
     Dates: start: 20211220
  2. ALECTINIB [Suspect]
     Active Substance: ALECTINIB
     Route: 048
     Dates: start: 20210623
  3. ZOMETA [Concomitant]
     Active Substance: ZOLEDRONIC ACID
     Indication: Metastases to bone
     Route: 042
     Dates: start: 20211011
  4. BISOPROLOL FUMARATE [Concomitant]
     Active Substance: BISOPROLOL FUMARATE
     Indication: Tachycardia
     Route: 048
     Dates: start: 20210705
  5. ROSUVASTATIN [Concomitant]
     Active Substance: ROSUVASTATIN
     Indication: Hypercholesterolaemia
     Route: 048
     Dates: start: 20220519
  6. PEGFILGRASTIM [Concomitant]
     Active Substance: PEGFILGRASTIM
     Indication: Blood disorder prophylaxis
     Dosage: DOSE: 1 OTHER? FREQUENCY TEXT:PRN
     Route: 058
     Dates: start: 20221209
  7. FOLIC ACID [Concomitant]
     Active Substance: FOLIC ACID
     Indication: Prophylaxis
     Route: 048
     Dates: start: 20221122
  8. DOBETIN [Concomitant]
     Dosage: DOSE: 1 OTHER? FREQUENCY TEXT:PRN
     Route: 030
     Dates: start: 20221122
  9. PREDNISONE [Concomitant]
     Active Substance: PREDNISONE
     Indication: Prophylaxis
     Dosage: FREQUENCY TEXT:PRN
     Route: 048
     Dates: start: 20221122
  10. RIOPAN (ITALY) [Concomitant]
     Indication: Gastrointestinal disorder prophylaxis
     Dosage: DOSE: 1 OTHER
     Route: 048
     Dates: start: 20221012
  11. VITAMIN D3 [Concomitant]
     Active Substance: CHOLECALCIFEROL
     Dosage: DOSE: 1 OTHER
     Route: 048
     Dates: start: 2021
  12. XANAX [Concomitant]
     Active Substance: ALPRAZOLAM
     Indication: Headache
     Route: 048
     Dates: start: 20230117
  13. LORLATINIB [Concomitant]
     Active Substance: LORLATINIB
     Dates: start: 20220321, end: 20221122
  14. CARBOPLATIN [Concomitant]
     Active Substance: CARBOPLATIN
     Dates: start: 20220323, end: 20221122
  15. CARBOPLATIN [Concomitant]
     Active Substance: CARBOPLATIN
     Dates: start: 20221122
  16. PEMETREXED [Concomitant]
     Active Substance: PEMETREXED
     Dates: start: 20220323, end: 20221122
  17. PEMETREXED [Concomitant]
     Active Substance: PEMETREXED
     Dates: start: 20221122

REACTIONS (2)
  - Constipation [Not Recovered/Not Resolved]
  - Headache [Not Recovered/Not Resolved]

NARRATIVE: CASE EVENT DATE: 20220117
